FAERS Safety Report 22606931 (Version 1)
Quarter: 2023Q2

REPORT INFORMATION
  Report Type: Spontaneous
  Country: PL (occurrence: PL)
  Receive Date: 20230615
  Receipt Date: 20230615
  Transmission Date: 20230722
  Serious: Yes (Other)
  Sender: FDA-Public Use
  Company Number: PL-GILEAD-2023-0632863

PATIENT
  Age: 41 Year
  Sex: Male

DRUGS (3)
  1. BIKTARVY [Suspect]
     Active Substance: BICTEGRAVIR SODIUM\EMTRICITABINE\TENOFOVIR ALAFENAMIDE FUMARATE
     Indication: Product used for unknown indication
     Dosage: 1 X 1
     Route: 065
     Dates: start: 20221218
  2. MESALAMINE [Concomitant]
     Active Substance: MESALAMINE
     Dosage: 3 X 2 TABLETS-500 MG
  3. PENICILLIN G [Concomitant]
     Active Substance: PENICILLIN G
     Dosage: 24 MU/D

REACTIONS (1)
  - Rectal ulcer [Recovering/Resolving]
